FAERS Safety Report 4404441-8 (Version None)
Quarter: 2004Q3

REPORT INFORMATION
  Report Type: 
  Country: None (occurrence: None)
  Receive Date: 20040720
  Receipt Date: 20040709
  Transmission Date: 20050211
  Serious: Yes (Hospitalization)
  Sender: FDA-Public Use
  Company Number: US-JNJFOC-20040702656

PATIENT
  Age: 76 Year
  Sex: Female

DRUGS (16)
  1. INFLIXIMAB(INFLIXIMAB , RECOMBINANT) LYOPHILIZED POWDER [Suspect]
     Indication: RHEUMATOID ARTHRITIS
     Dosage: INTRAVENOUS
     Dates: start: 20030410, end: 20030612
  2. PREDNISONE [Concomitant]
  3. PREMARIN [Concomitant]
  4. LANOXIN [Concomitant]
  5. LASIX [Concomitant]
  6. MACRODANTIN [Concomitant]
  7. CARDURA [Concomitant]
  8. CELEXA [Concomitant]
  9. SYNTHROID [Concomitant]
  10. COUMADIN [Concomitant]
  11. MOBIC [Concomitant]
  12. METHOTREXATE [Concomitant]
  13. ISOSORBIDE (ISOSORBIDE) [Concomitant]
  14. MULTIVITAMIN (MULTIVITAMINS) [Concomitant]
  15. CALCIUM + D (CALCIUM) [Concomitant]
  16. TYLENOL [Concomitant]

REACTIONS (5)
  - CORONARY ARTERY DISEASE [None]
  - INFLAMMATION [None]
  - PNEUMONIA BLASTOMYCES [None]
  - PNEUMONIA FUNGAL [None]
  - PULMONARY GRANULOMA [None]
